FAERS Safety Report 15898809 (Version 1)
Quarter: 2019Q1

REPORT INFORMATION
  Report Type: Spontaneous
  Country: US (occurrence: US)
  Receive Date: 20190201
  Receipt Date: 20190201
  Transmission Date: 20190417
  Serious: Yes (Other)
  Sender: FDA-Public Use
  Company Number: US-GLAXOSMITHKLINE-US2019013393

PATIENT
  Age: 74 Year
  Sex: Male

DRUGS (4)
  1. PANTOPRAZOLE [Interacting]
     Active Substance: PANTOPRAZOLE
     Indication: DYSPEPSIA
     Dosage: UNK
     Dates: start: 2009
  2. TAGAMET [Suspect]
     Active Substance: CIMETIDINE
     Indication: DYSPEPSIA
     Dosage: UNK
     Dates: start: 2009
  3. GAVISCON EXTRA STRENGTH [Suspect]
     Active Substance: ALUMINUM HYDROXIDE\MAGNESIUM CARBONATE
     Indication: DYSPEPSIA
     Dosage: UNK, QD
     Dates: start: 1994
  4. GAVISCON EXTRA STRENGTH [Suspect]
     Active Substance: ALUMINUM HYDROXIDE\MAGNESIUM CARBONATE
     Dosage: UNK, QD

REACTIONS (7)
  - Adverse reaction [Unknown]
  - Incorrect product administration duration [Unknown]
  - Barrett^s oesophagus [Not Recovered/Not Resolved]
  - Post procedural complication [Unknown]
  - Hernia [Unknown]
  - Drug interaction [Unknown]
  - Off label use [Unknown]
